FAERS Safety Report 11528425 (Version 1)
Quarter: 2015Q3

REPORT INFORMATION
  Report Type: Spontaneous
  Country: US (occurrence: US)
  Receive Date: 20150921
  Receipt Date: 20150921
  Transmission Date: 20151125
  Serious: Yes (Other)
  Sender: FDA-Public Use
  Company Number: US-TEVA-570268USA

PATIENT
  Age: 81 Year
  Sex: Male

DRUGS (3)
  1. CLONAZEPAM ODT [Suspect]
     Active Substance: CLONAZEPAM
     Dosage: ^CUT BACK TO HALF OF THE DOSAGE^
     Route: 048
     Dates: start: 20150608
  2. ZOLPIDEM [Suspect]
     Active Substance: ZOLPIDEM\ZOLPIDEM TARTRATE
     Indication: INSOMNIA
     Route: 065
  3. CLONAZEPAM ODT [Suspect]
     Active Substance: CLONAZEPAM
     Indication: ANXIETY
     Route: 048
     Dates: start: 20150527, end: 201506

REACTIONS (20)
  - Drug ineffective [Unknown]
  - Hearing impaired [Unknown]
  - Weight decreased [Unknown]
  - Social avoidant behaviour [Unknown]
  - Drug dependence [Unknown]
  - Anxiety [Not Recovered/Not Resolved]
  - Headache [Unknown]
  - Depressed mood [Not Recovered/Not Resolved]
  - Hallucination [Unknown]
  - Incorrect dose administered [Unknown]
  - Dizziness [Unknown]
  - Intentional product use issue [Unknown]
  - Insomnia [Unknown]
  - Withdrawal syndrome [Unknown]
  - Confusional state [Not Recovered/Not Resolved]
  - Hypoacusis [Unknown]
  - Feeling abnormal [Unknown]
  - Thinking abnormal [Not Recovered/Not Resolved]
  - Asthenia [Unknown]
  - Dry mouth [Not Recovered/Not Resolved]

NARRATIVE: CASE EVENT DATE: 20150528
